FAERS Safety Report 10736575 (Version 1)
Quarter: 2015Q1

REPORT INFORMATION
  Report Type: Spontaneous
  Country: MX (occurrence: MX)
  Receive Date: 20150126
  Receipt Date: 20150126
  Transmission Date: 20150721
  Serious: Yes (Other)
  Sender: FDA-Public Use
  Company Number: MX-BAYER-2015-005189

PATIENT
  Age: 81 Year
  Sex: Male

DRUGS (1)
  1. CANESTEN VAGINAL CREAM [Suspect]
     Active Substance: CLOTRIMAZOLE\HYDROCORTISONE
     Indication: GENITAL INFECTION FUNGAL
     Dosage: 1 DF, QD
     Dates: end: 20150111

REACTIONS (3)
  - Penile haemorrhage [Unknown]
  - Medication error [None]
  - Genital discomfort [Unknown]
